FAERS Safety Report 5861758-8 (Version None)
Quarter: 2008Q3

REPORT INFORMATION
  Report Type: 
  Country: None (occurrence: None)
  Receive Date: 20080827
  Receipt Date: 20080714
  Transmission Date: 20090109
  Serious: No
  Sender: FDA-Public Use
  Company Number: US-ABBOTT-08P-163-0462597-00

PATIENT
  Sex: Female

DRUGS (3)
  1. COATED PDS [Suspect]
     Indication: BLOOD CHOLESTEROL INCREASED
     Route: 048
     Dates: start: 20080707
  2. ALISKIREN [Concomitant]
     Indication: DRUG USE FOR UNKNOWN INDICATION
  3. MULTI-VITAMIN [Concomitant]
     Indication: DRUG USE FOR UNKNOWN INDICATION

REACTIONS (3)
  - FEELING HOT [None]
  - HEADACHE [None]
  - PRURITUS [None]
